FAERS Safety Report 4405864-3 (Version None)
Quarter: 2004Q3

REPORT INFORMATION
  Report Type: 
  Country: None (occurrence: None)
  Receive Date: 20040723
  Receipt Date: 20040121
  Transmission Date: 20050211
  Serious: No
  Sender: FDA-Public Use
  Company Number: US-GLAXOSMITHKLINE-A0494479A

PATIENT
  Age: 56 Year
  Sex: Female

DRUGS (7)
  1. AVANDIA [Suspect]
     Dosage: 8MG PER DAY
     Route: 048
  2. DIOVAN [Concomitant]
  3. MAXZIDE [Concomitant]
  4. TOPROL-XL [Concomitant]
  5. LIPITOR [Concomitant]
  6. IMIPRAMINE [Concomitant]
  7. HORMONE PATCH [Concomitant]

REACTIONS (2)
  - ARTHRALGIA [None]
  - FEELING COLD [None]
